FAERS Safety Report 7540817-8 (Version None)
Quarter: 2011Q2

REPORT INFORMATION
  Report Type: 
  Country: None (occurrence: None)
  Receive Date: 20110610
  Receipt Date: 20110601
  Transmission Date: 20111010
  Serious: Yes (Other)
  Sender: FDA-Public Use
  Company Number: BR-ROCHE-781561

PATIENT
  Sex: Female

DRUGS (2)
  1. LUCENTIS [Suspect]
     Route: 031
  2. AVASTIN [Suspect]
     Route: 065

REACTIONS (2)
  - EYE HAEMORRHAGE [None]
  - DRUG INEFFECTIVE [None]
